FAERS Safety Report 8903035 (Version 2)
Quarter: 2012Q4

REPORT INFORMATION
  Report Type: 
  Country: SE (occurrence: SE)
  Receive Date: 20121113
  Receipt Date: 20121116
  Transmission Date: 20130627
  Serious: Yes (Hospitalization, Other)
  Sender: FDA-Public Use
  Company Number: SE-PFIZER INC-2012279235

PATIENT
  Age: 37 Year
  Sex: Male
  Weight: 67.4 kg

DRUGS (9)
  1. GENOTROPIN [Suspect]
     Indication: GROWTH HORMONE DEFICIENCY
     Dosage: 0.2 mg, 1x/day, 7 injections/week
     Route: 058
     Dates: start: 20100115
  2. LEVOTHYROXINE [Concomitant]
     Indication: TSH DECREASED
     Dosage: UNK
     Dates: start: 19850101, end: 20090101
  3. INSULIN [Concomitant]
     Indication: DIABETES MELLITUS WITHOUT MENTION OF COMPLICATION
     Dosage: UNK
     Dates: start: 19900101
  4. TESTOSTERONE [Concomitant]
     Indication: LUTEINISING HORMONE DEFICIENCY
     Dosage: UNK
     Dates: start: 19920101
  5. TESTOSTERONE [Concomitant]
     Indication: FOLLICLE-STIMULATING HORMONE DEFICIENCY
  6. ENALAPRIL [Concomitant]
     Indication: HYPERTENSION
     Dosage: UNK
     Dates: start: 20090101
  7. HERMOLEPSIN [Concomitant]
     Indication: EPILEPSY
     Dosage: UNK
     Dates: start: 20090101
  8. LEVAXIN [Concomitant]
     Indication: HYPOTHYROIDISM
     Dosage: UNK
     Dates: start: 20090101
  9. SIMVASTATIN [Concomitant]
     Indication: HYPERLIPIDEMIA
     Dosage: UNK
     Dates: start: 20090101

REACTIONS (1)
  - Urinary tract infection [Unknown]
